FAERS Safety Report 7301900-5 (Version None)
Quarter: 2011Q1

REPORT INFORMATION
  Report Type: 
  Country: None (occurrence: None)
  Receive Date: 20110218
  Receipt Date: 20110211
  Transmission Date: 20110831
  Serious: Yes (Death)
  Sender: FDA-Public Use
  Company Number: DE-ROCHE-756505

PATIENT
  Sex: Female
  Weight: 55.4 kg

DRUGS (23)
  1. MYCOPHENOLATE MEFETIL [Suspect]
     Dosage: LAST DOSE PRIOR TO SAE: 27 JANUARY 2011
     Route: 048
     Dates: start: 20101212
  2. OMEGA-3-ACID ETHYL ESTERS [Concomitant]
     Dosage: DRUG REPORTED AS OMEGA-3-SAUR ETHYL ESTER
     Dates: start: 20100119, end: 20110127
  3. MAGNESIUM [Concomitant]
     Dates: start: 20101209, end: 20110127
  4. CALCIUM/VITAMIN D3 [Concomitant]
     Dosage: TOTAL DAILY DOSE: 12 GRAM/800 IU
     Dates: start: 20110110, end: 20110127
  5. PANTOPRAZOL [Concomitant]
     Dates: start: 20101209, end: 20110127
  6. PERMETHRIN [Concomitant]
     Dosage: DOSE: AS NECESSARY
     Dates: start: 20110101, end: 20110127
  7. CYCLOSPORINE [Concomitant]
     Dates: start: 20101209, end: 20110127
  8. PRAVASTATIN [Concomitant]
     Dates: start: 20101209, end: 20110127
  9. METOCLOPRAMID [Concomitant]
     Dates: start: 20101231, end: 20110127
  10. CIPRAMIL [Concomitant]
     Dates: start: 20110101, end: 20110127
  11. ITRACONAZOLE [Concomitant]
     Dates: start: 20101209, end: 20110127
  12. XYLOMETAZOLIN [Concomitant]
     Dosage: DOSE: AS NECESSARY
  13. MIRTAZAPIN [Concomitant]
     Dates: start: 20110110, end: 20110127
  14. TINZAPARIN SODIUM [Concomitant]
     Dates: start: 20110110, end: 20110127
  15. ACETYLCYSTEINE [Concomitant]
     Dates: start: 20101209, end: 20110127
  16. VALGANCICLOVIR [Concomitant]
     Dates: start: 20101209, end: 20110127
  17. METOPROLOLO [Concomitant]
     Dates: start: 20101217, end: 20110127
  18. TOLAZAMIDE [Concomitant]
     Dates: start: 20110110, end: 20110127
  19. LABETALOL [Concomitant]
     Dates: start: 20110119, end: 20110127
  20. PREDNISOLONE [Concomitant]
     Dates: start: 20101209, end: 20101227
  21. SODIUM CHLORIDE [Concomitant]
     Dates: start: 20110101, end: 20110127
  22. COTRIM [Concomitant]
     Dosage: 960 MG AS NECESSARY
     Dates: start: 20101210, end: 20110127
  23. PROMETHAZINE [Concomitant]
     Dosage: DOSE 25 MG AS NEEDED.

REACTIONS (1)
  - SUDDEN CARDIAC DEATH [None]
